FAERS Safety Report 7717270-4 (Version None)
Quarter: 2011Q3

REPORT INFORMATION
  Report Type: 
  Country: None (occurrence: None)
  Receive Date: 20110826
  Receipt Date: 20110826
  Transmission Date: 20111222
  Serious: No
  Sender: FDA-Public Use
  Company Number: None

PATIENT
  Sex: Female

DRUGS (6)
  1. FOLIC ACID [Concomitant]
  2. ENBREL [Suspect]
     Indication: RHEUMATOID ARTHRITIS
     Dosage: 50 MG QW SQ
     Route: 058
     Dates: start: 20110513
  3. METHOTREXATE [Concomitant]
  4. PIAQUENIL [Concomitant]
  5. VIT B6 [Concomitant]
  6. INH [Concomitant]

REACTIONS (2)
  - SKIN DISCOLOURATION [None]
  - RASH PRURITIC [None]
